FAERS Safety Report 17989596 (Version 1)
Quarter: 2020Q3

REPORT INFORMATION
  Report Type: Spontaneous
  Country: US (occurrence: US)
  Receive Date: 20200707
  Receipt Date: 20200707
  Transmission Date: 20201103
  Serious: Yes (Other)
  Sender: FDA-Public Use
  Company Number: US-GILEAD-2020-0479362

PATIENT
  Age: 46 Year
  Sex: Male
  Weight: 64.9 kg

DRUGS (11)
  1. REMDESIVIR. [Suspect]
     Active Substance: REMDESIVIR
     Dosage: 100 MG, QD
     Route: 042
     Dates: start: 20200629, end: 20200629
  2. FAMOTIDINE. [Concomitant]
     Active Substance: FAMOTIDINE
  3. PROPOFOL. [Concomitant]
     Active Substance: PROPOFOL
  4. NOREPINEPHRINE. [Concomitant]
     Active Substance: NOREPINEPHRINE
  5. REMDESIVIR. [Suspect]
     Active Substance: REMDESIVIR
     Indication: COVID-19
     Dosage: 100 MG, QD
     Route: 042
     Dates: start: 20200624, end: 20200627
  6. ENOXAPARIN [Concomitant]
     Active Substance: ENOXAPARIN
  7. INSULIN LISPRO [Concomitant]
     Active Substance: INSULIN LISPRO
  8. BIO K PLUS [Concomitant]
  9. DEXAMETHASONE. [Concomitant]
     Active Substance: DEXAMETHASONE
  10. LORAZEPAM. [Concomitant]
     Active Substance: LORAZEPAM
  11. HYDROMORPHONE [Concomitant]
     Active Substance: HYDROMORPHONE

REACTIONS (1)
  - Alanine aminotransferase increased [Recovering/Resolving]

NARRATIVE: CASE EVENT DATE: 20200627
